FAERS Safety Report 9145993 (Version 2)
Quarter: 2013Q4

REPORT INFORMATION
  Report Type: Spontaneous
  Country: GB (occurrence: GB)
  Receive Date: 20130307
  Receipt Date: 20131029
  Transmission Date: 20140711
  Serious: Yes (Other)
  Sender: FDA-Public Use
  Company Number: GB-NOVOPROD-371836

PATIENT
  Age: 59 Year
  Sex: Female

DRUGS (8)
  1. VICTOZA [Suspect]
     Indication: TYPE 2 DIABETES MELLITUS
     Dosage: UNK
     Route: 065
     Dates: start: 20121203, end: 20130205
  2. ATORVASTATIN [Concomitant]
     Dosage: UNK (10 MG)
     Route: 065
  3. CO-CODAMOL [Concomitant]
     Dosage: UNK
     Route: 065
  4. LANTUS [Concomitant]
     Dosage: UNK
     Route: 065
  5. LISINOPRIL [Concomitant]
     Dosage: UNK
     Route: 065
  6. PIOGLITAZONE [Concomitant]
     Dosage: UNK (45 MG)
     Route: 065
  7. VENLAFAXINE [Concomitant]
     Dosage: UNK (75 MG)
     Route: 065
  8. HUMULIN [Concomitant]
     Dosage: UNK
     Route: 065

REACTIONS (8)
  - Abdominal pain [Recovered/Resolved]
  - Urinary tract infection [Unknown]
  - Diarrhoea [Recovered/Resolved]
  - Flatulence [Not Recovered/Not Resolved]
  - Vomiting [Not Recovered/Not Resolved]
  - Malaise [Unknown]
  - Eructation [Recovered/Resolved]
  - Nausea [Recovered/Resolved]
